FAERS Safety Report 4861660-4 (Version None)
Quarter: 2005Q4

REPORT INFORMATION
  Report Type: 
  Country: None (occurrence: None)
  Receive Date: 20051130
  Receipt Date: 20041210
  Transmission Date: 20060501
  Serious: Yes (Other)
  Sender: FDA-Public Use
  Company Number: 200421093BWH

PATIENT
  Age: 40 Year
  Sex: Female

DRUGS (1)
  1. CIPRO [Suspect]

REACTIONS (2)
  - ARTHRALGIA [None]
  - TENDON DISORDER [None]
